FAERS Safety Report 10631035 (Version 1)
Quarter: 2014Q4

REPORT INFORMATION
  Report Type: Spontaneous
  Country: US (occurrence: US)
  Receive Date: 20141205
  Receipt Date: 20141205
  Transmission Date: 20150529
  Serious: No
  Sender: FDA-Public Use
  Company Number: US-BRISTOL-MYERS SQUIBB COMPANY-21530365

PATIENT
  Sex: Male

DRUGS (2)
  1. CELECOXIB. [Interacting]
     Active Substance: CELECOXIB
  2. ELIQUIS [Suspect]
     Active Substance: APIXABAN

REACTIONS (2)
  - Drug interaction [Unknown]
  - Arthritis [Unknown]
